FAERS Safety Report 7882590-X (Version None)
Quarter: 2011Q4

REPORT INFORMATION
  Report Type: 
  Country: None (occurrence: None)
  Receive Date: 20111101
  Receipt Date: 20110616
  Transmission Date: 20120403
  Serious: No
  Sender: FDA-Public Use
  Company Number: US-AMGEN-USASP2011030925

PATIENT
  Age: 44 Year
  Sex: Female
  Weight: 68.027 kg

DRUGS (8)
  1. ASCORBIC ACID [Concomitant]
     Dosage: 500 MG, UNK
  2. VITAMIN D [Concomitant]
     Dosage: 1000 IU, UNK
  3. VITAMIN B COMPLEX CAP [Concomitant]
     Dosage: UNK
  4. SAM-E [Concomitant]
     Dosage: 200 MG, UNK
  5. ENBREL [Suspect]
     Indication: PRODUCT USED FOR UNKNOWN INDICATION
     Dosage: 50 MG, QWK
  6. VITAMIN E [Concomitant]
     Dosage: 100 IU, UNK
  7. VITAMIN A [Concomitant]
     Dosage: 10000 IU, UNK
  8. CLARITIN [Concomitant]
     Dosage: 10 MG, UNK

REACTIONS (2)
  - RASH [None]
  - UPPER RESPIRATORY TRACT INFECTION [None]
